FAERS Safety Report 7138269-5 (Version None)
Quarter: 2010Q4

REPORT INFORMATION
  Report Type: 
  Country: None (occurrence: None)
  Receive Date: 20101202
  Receipt Date: 20101202
  Transmission Date: 20110411
  Serious: Yes (Life-Threatening, Hospitalization)
  Sender: FDA-Public Use
  Company Number: None

PATIENT
  Age: 48 Year
  Sex: Male
  Weight: 114 kg

DRUGS (2)
  1. MORPHINE [Suspect]
     Indication: PAIN
     Dosage: 1680 MG ONCE PO
     Route: 048
     Dates: start: 20100813, end: 20100813
  2. ACETAMINOPHEN AND OXYCODONE HCL [Suspect]
     Indication: PAIN
     Dosage: 7 TAB ONCE PO
     Route: 048
     Dates: start: 20100813, end: 20100813

REACTIONS (1)
  - INTENTIONAL OVERDOSE [None]
